FAERS Safety Report 7411790-8 (Version None)
Quarter: 2011Q2

REPORT INFORMATION
  Report Type: 
  Country: None (occurrence: None)
  Receive Date: 20110413
  Receipt Date: 20110117
  Transmission Date: 20111010
  Serious: Yes (Other)
  Sender: FDA-Public Use
  Company Number: US-BRISTOL-MYERS SQUIBB COMPANY-15496607

PATIENT
  Age: 60 Year
  Sex: Male

DRUGS (3)
  1. ACETAMINOPHEN [Concomitant]
     Indication: PREMEDICATION
     Dosage: TABS
     Route: 048
     Dates: start: 20110117
  2. BENADRYL [Concomitant]
     Indication: PREMEDICATION
     Dosage: TABS
     Route: 048
     Dates: start: 20110117
  3. ERBITUX [Suspect]
     Indication: SKIN CANCER
     Dosage: FORM:SUSPENSION RECEIVED 94MG/M2
     Dates: start: 20110117, end: 20110117

REACTIONS (3)
  - SWOLLEN TONGUE [None]
  - PRURITUS [None]
  - THROAT IRRITATION [None]
